FAERS Safety Report 16560782 (Version 2)
Quarter: 2019Q3

REPORT INFORMATION
  Report Type: Spontaneous
  Country: US (occurrence: US)
  Receive Date: 20190711
  Receipt Date: 20190717
  Transmission Date: 20191004
  Serious: No
  Sender: FDA-Public Use
  Company Number: US-SA-2019SA185803

PATIENT
  Age: 57 Year
  Sex: Female

DRUGS (1)
  1. PRALUENT [Suspect]
     Active Substance: ALIROCUMAB
     Indication: BLOOD CHOLESTEROL INCREASED
     Dosage: 75 MG, QOW
     Dates: start: 2017

REACTIONS (6)
  - Injection site erythema [Unknown]
  - Product use issue [Unknown]
  - Dry skin [Unknown]
  - Skin exfoliation [Unknown]
  - Feeling abnormal [Unknown]
  - Head injury [Unknown]

NARRATIVE: CASE EVENT DATE: 2018
